FAERS Safety Report 6631546-3 (Version None)
Quarter: 2010Q1

REPORT INFORMATION
  Report Type: 
  Country: None (occurrence: None)
  Receive Date: 20100312
  Receipt Date: 20100305
  Transmission Date: 20100710
  Serious: Yes (Death)
  Sender: FDA-Public Use
  Company Number: PHHY2010DE11788

PATIENT
  Sex: Female
  Weight: 72 kg

DRUGS (12)
  1. ALISKIREN ALI+ [Suspect]
     Indication: HYPERTENSION
     Dosage: 300 MG PER DAY
     Route: 048
     Dates: start: 20080602, end: 20090620
  2. RASILEZ HCT [Suspect]
     Indication: HYPERTENSION
     Dosage: 1 DF PER DAY
     Route: 048
     Dates: start: 20090620
  3. METOPROLOL TARTRATE [Concomitant]
     Indication: HYPERTENSION
     Dosage: 200 MG PER DAY
     Route: 048
     Dates: end: 20080601
  4. TORSEMIDE [Concomitant]
     Indication: HYPERTENSION
     Dosage: 20 MG PER DAY
     Route: 048
  5. ZANIPRESS [Concomitant]
     Indication: HYPERTENSION
     Dosage: 1 DF PER DAY
     Route: 048
  6. BISOPROLOL FUMARATE [Concomitant]
     Indication: HYPERTENSION
     Dosage: 5 MG PER DAY
     Route: 048
  7. CARVEDILOL [Concomitant]
  8. PRAVASTATIN [Concomitant]
  9. LYRICA [Concomitant]
  10. EUTHYROX [Concomitant]
  11. TORAGAMMA [Concomitant]
  12. OMEPRAZOL [Concomitant]

REACTIONS (7)
  - ALBUMINURIA [None]
  - ARRHYTHMIA [None]
  - BLOOD PRESSURE INCREASED [None]
  - CEREBROVASCULAR ACCIDENT [None]
  - METASTASES TO CENTRAL NERVOUS SYSTEM [None]
  - PULMONARY EMBOLISM [None]
  - TUMOUR HAEMORRHAGE [None]
